FAERS Safety Report 4469840-7 (Version None)
Quarter: 2004Q4

REPORT INFORMATION
  Report Type: 
  Country: None (occurrence: None)
  Receive Date: 20041008
  Receipt Date: 20040906
  Transmission Date: 20050328
  Serious: Yes (Hospitalization)
  Sender: FDA-Public Use
  Company Number: JP-BRISTOL-MYERS SQUIBB COMPANY-12693537

PATIENT
  Age: 46 Year
  Sex: Female

DRUGS (6)
  1. TAXOL [Suspect]
     Indication: OVARIAN CANCER
     Dosage: THERAPY DATES: 26-APR TO 10-AUG-2004
     Route: 042
     Dates: start: 20040810, end: 20040810
  2. PARAPLATIN [Suspect]
     Indication: OVARIAN CANCER
     Dosage: THERAPY DATES: 26-APR TO 10-AUG-2004
     Route: 042
     Dates: start: 20040810, end: 20040810
  3. DEXAMETHASONE SODIUM PHOSPHATE [Concomitant]
     Route: 042
     Dates: start: 20040809, end: 20040810
  4. FAMOTIDINE [Concomitant]
     Route: 042
     Dates: start: 20040810, end: 20040810
  5. GRANISETRON HCL [Concomitant]
     Route: 042
     Dates: start: 20040810, end: 20040811
  6. DIPHENHYDRAMINE HCL [Concomitant]
     Route: 048
     Dates: start: 20040810, end: 20040810

REACTIONS (2)
  - ILEUS [None]
  - WHITE BLOOD CELL COUNT DECREASED [None]
